FAERS Safety Report 21129134 (Version 1)
Quarter: 2022Q3

REPORT INFORMATION
  Report Type: Other
  Country: JP (occurrence: JP)
  Receive Date: 20220725
  Receipt Date: 20220725
  Transmission Date: 20221027
  Serious: Yes (Hospitalization)
  Sender: FDA-Public Use
  Company Number: JP-CHUGAI-A2020021583AA

PATIENT
  Age: 54 Year
  Sex: Female
  Weight: 60.9 kg

DRUGS (3)
  1. ENTRECTINIB [Suspect]
     Active Substance: ENTRECTINIB
     Indication: Non-small cell lung cancer
     Dosage: 600 MILLIGRAM, QD
     Route: 048
     Dates: start: 20200417, end: 20200421
  2. ENTRECTINIB [Suspect]
     Active Substance: ENTRECTINIB
     Dosage: 400 MILLIGRAM, QD
     Route: 048
     Dates: start: 20200603, end: 20201028
  3. ENTRECTINIB [Suspect]
     Active Substance: ENTRECTINIB
     Dosage: 400 MILLIGRAM, QD
     Route: 048
     Dates: start: 20201105, end: 20201206

REACTIONS (2)
  - Intracranial tumour haemorrhage [Recovering/Resolving]
  - Rash [Recovering/Resolving]

NARRATIVE: CASE EVENT DATE: 20200427
